FAERS Safety Report 6295265-8 (Version None)
Quarter: 2009Q3

REPORT INFORMATION
  Report Type: 
  Country: None (occurrence: None)
  Receive Date: 20090730
  Receipt Date: 20090714
  Transmission Date: 20100115
  Serious: Yes (Other)
  Sender: FDA-Public Use
  Company Number: 1-19166257

PATIENT
  Age: 50 Year
  Sex: Male

DRUGS (1)
  1. FLO-PRED [Suspect]
     Indication: POLYARTHRITIS
     Dosage: 60 MG/D TAPERED TO 10 MG/D, ORAL
     Route: 048
     Dates: start: 19960101

REACTIONS (13)
  - ABDOMINAL PAIN [None]
  - BLOOD ALBUMIN DECREASED [None]
  - DECREASED APPETITE [None]
  - EROSIVE DUODENITIS [None]
  - GASTROINTESTINAL MUCOSAL DISORDER [None]
  - HAEMOGLOBIN DECREASED [None]
  - IMMUNOSUPPRESSION [None]
  - OEDEMA PERIPHERAL [None]
  - PLATELET COUNT DECREASED [None]
  - PROTEIN TOTAL DECREASED [None]
  - STRONGYLOIDIASIS [None]
  - VOMITING [None]
  - WEIGHT DECREASED [None]
